FAERS Safety Report 19732854 (Version 1)
Quarter: 2021Q3

REPORT INFORMATION
  Report Type: Spontaneous
  Country: US (occurrence: US)
  Receive Date: 20210823
  Receipt Date: 20210823
  Transmission Date: 20211014
  Serious: No
  Sender: FDA-Public Use
  Company Number: NVSC2021US184648

PATIENT
  Age: 15 Year
  Sex: Female

DRUGS (1)
  1. GILENYA [Suspect]
     Active Substance: FINGOLIMOD HYDROCHLORIDE
     Indication: MULTIPLE SCLEROSIS
     Dosage: UNK
     Route: 065
     Dates: start: 202106

REACTIONS (6)
  - Drug ineffective [Unknown]
  - Myalgia [Unknown]
  - Pyrexia [Unknown]
  - Illness [Unknown]
  - Paraesthesia [Unknown]
  - Dysaesthesia [Unknown]
